FAERS Safety Report 25053752 (Version 1)
Quarter: 2025Q1

REPORT INFORMATION
  Report Type: Spontaneous
  Country: US (occurrence: US)
  Receive Date: 20250307
  Receipt Date: 20250307
  Transmission Date: 20250408
  Serious: No
  Sender: SANOFI AVENTIS
  Company Number: US-SA-2025SA065797

PATIENT
  Sex: Male
  Weight: 83.64 kg

DRUGS (3)
  1. DUPIXENT [Suspect]
     Active Substance: DUPILUMAB
     Indication: Dermatitis atopic
     Dosage: 300MG/2ML QOW
     Route: 058
     Dates: start: 202206
  2. HYDROXYZINE [Concomitant]
     Active Substance: HYDROXYZINE HYDROCHLORIDE
  3. DESONIDE [Concomitant]
     Active Substance: DESONIDE

REACTIONS (3)
  - Rash pruritic [Recovered/Resolved]
  - Skin discolouration [Recovered/Resolved]
  - Drug effect less than expected [Unknown]
